FAERS Safety Report 15614183 (Version 5)
Quarter: 2019Q1

REPORT INFORMATION
  Report Type: Spontaneous
  Country: US (occurrence: US)
  Receive Date: 20181113
  Receipt Date: 20190102
  Transmission Date: 20190417
  Serious: No
  Sender: FDA-Public Use
  Company Number: US-PFIZER INC-2018454871

PATIENT
  Age: 16 Year
  Sex: Male

DRUGS (1)
  1. GENOTROPIN [Suspect]
     Active Substance: SOMATROPIN
     Indication: GROWTH HORMONE DEFICIENCY
     Dosage: 2.8 MG, DAILY (2.8 MG PER DAY X 7 DAYS PER WEEK)
     Dates: start: 201807

REACTIONS (8)
  - Weight decreased [Unknown]
  - Muscle mass [Unknown]
  - Blood triglycerides increased [Unknown]
  - Energy increased [Unknown]
  - Muscle spasms [Unknown]
  - Incorrect dose administered [Unknown]
  - Insulin-like growth factor increased [Unknown]
  - Blood testosterone decreased [Unknown]

NARRATIVE: CASE EVENT DATE: 20180822
